FAERS Safety Report 17852013 (Version 1)
Quarter: 2020Q2

REPORT INFORMATION
  Report Type: Spontaneous
  Country: US (occurrence: US)
  Receive Date: 20200602
  Receipt Date: 20200602
  Transmission Date: 20200714
  Serious: No
  Sender: FDA-Public Use
  Company Number: US-JNJFOC-20200535411

PATIENT
  Age: 71 Year
  Sex: Female
  Weight: 44.04 kg

DRUGS (4)
  1. STELARA [Suspect]
     Active Substance: USTEKINUMAB
  2. XANAX [Concomitant]
     Active Substance: ALPRAZOLAM
     Indication: STRESS
     Dosage: 1
     Route: 065
  3. XANAX [Concomitant]
     Active Substance: ALPRAZOLAM
     Indication: ANXIETY
  4. STELARA [Suspect]
     Active Substance: USTEKINUMAB
     Indication: CROHN^S DISEASE
     Route: 058

REACTIONS (1)
  - Skin laceration [Unknown]

NARRATIVE: CASE EVENT DATE: 20200513
